FAERS Safety Report 10368103 (Version 1)
Quarter: 2014Q3

REPORT INFORMATION
  Report Type: Spontaneous
  Country: US (occurrence: None)
  Receive Date: 20140805
  Receipt Date: 20140805
  Transmission Date: 20150326
  Serious: Yes (Other)
  Sender: FDA-Public Use
  Company Number: US-BIOTEST-T 264/14

PATIENT
  Age: 20 Year
  Sex: Female

DRUGS (40)
  1. POTASSIUM CHLORIDE. [Concomitant]
     Active Substance: POTASSIUM CHLORIDE
  2. NS [Concomitant]
     Active Substance: SODIUM CHLORIDE
  3. TICAGRELOR [Concomitant]
     Active Substance: TICAGRELOR
  4. CALCIUM GLUCONATE. [Concomitant]
     Active Substance: CALCIUM GLUCONATE
  5. INSULIN GLARGINE [Concomitant]
     Active Substance: INSULIN GLARGINE
  6. PANTOPRAZOLE [Concomitant]
     Active Substance: PANTOPRAZOLE SODIUM
  7. PHENYLEPHRINE [Concomitant]
     Active Substance: PHENYLEPHRINE\PHENYLEPHRINE HYDROCHLORIDE
  8. SUCCINYLCHOLINE [Concomitant]
     Active Substance: SUCCINYLCHOLINE
  9. CELLULOSE SURGICEL [Concomitant]
  10. PHYTONADIONE. [Concomitant]
     Active Substance: PHYTONADIONE
  11. ACETAMINOPHEN. [Concomitant]
     Active Substance: ACETAMINOPHEN
  12. BIVIGAM [Suspect]
     Active Substance: HUMAN IMMUNOGLOBULIN G
     Indication: IMMUNODEFICIENCY
     Route: 041
     Dates: start: 20131028, end: 20131028
  13. HALOPERIDOL. [Concomitant]
     Active Substance: HALOPERIDOL
  14. DILTIAZEM [Concomitant]
     Active Substance: DILTIAZEM
  15. MEROPENEM. [Concomitant]
     Active Substance: MEROPENEM
  16. FUROSEMIDE. [Concomitant]
     Active Substance: FUROSEMIDE
  17. FENTANYL. [Concomitant]
     Active Substance: FENTANYL
  18. BISACODYL. [Concomitant]
     Active Substance: BISACODYL
  19. DEXMEDETOMIDINE [Concomitant]
     Active Substance: DEXMEDETOMIDINE
  20. ONDANSETRON [Concomitant]
     Active Substance: ONDANSETRON
  21. VANCOMYCIN [Concomitant]
     Active Substance: VANCOMYCIN
  22. ASPIRIN. [Concomitant]
     Active Substance: ASPIRIN
  23. LORAZEPAM. [Concomitant]
     Active Substance: LORAZEPAM
  24. ALBUMIN [Concomitant]
     Active Substance: ALBUMIN (HUMAN)
  25. CYANOCOBALAMIN. [Concomitant]
     Active Substance: CYANOCOBALAMIN
  26. HEPARIN [Concomitant]
     Active Substance: HEPARIN SODIUM
  27. METOPROLOL [Concomitant]
     Active Substance: METOPROLOL
  28. D5W [Concomitant]
  29. PROPOFOL. [Concomitant]
     Active Substance: PROPOFOL
  30. NOR-EPHINEPHRINE [Concomitant]
  31. VASOPRESSIN [Concomitant]
     Active Substance: VASOPRESSIN
  32. AZITHROMYCIN [Concomitant]
     Active Substance: AZITHROMYCIN ANHYDROUS
  33. FAMOTIDINE. [Concomitant]
     Active Substance: FAMOTIDINE
  34. INSULIN ASPART [Concomitant]
     Active Substance: INSULIN ASPART
  35. MIDAZOLAM [Concomitant]
     Active Substance: MIDAZOLAM\MIDAZOLAM HYDROCHLORIDE
  36. SENNA [Concomitant]
     Active Substance: SENNA LEAF\SENNOSIDES\SENNOSIDES A AND B
  37. STERILE WATER [Concomitant]
     Active Substance: WATER
  38. ERYTHROMYCIN. [Concomitant]
     Active Substance: ERYTHROMYCIN
  39. METHYLPREDNISOLONE [Concomitant]
     Active Substance: METHYLPREDNISOLONE
  40. PNEUMOCOCCAL [Concomitant]
     Active Substance: PNEUMOCOCCAL VACCINE POLYVALENT

REACTIONS (3)
  - Refusal of treatment by patient [None]
  - Migraine [None]
  - Product quality issue [None]

NARRATIVE: CASE EVENT DATE: 20131028
